FAERS Safety Report 7927265-3 (Version None)
Quarter: 2011Q4

REPORT INFORMATION
  Report Type: 
  Country: None (occurrence: None)
  Receive Date: 20111118
  Receipt Date: 20111110
  Transmission Date: 20120403
  Serious: Yes (Death, Hospitalization)
  Sender: FDA-Public Use
  Company Number: JP-PFIZER INC-2011230529

PATIENT
  Age: 82 Year
  Sex: Male
  Weight: 46.4 kg

DRUGS (10)
  1. TEMSIROLIMUS [Suspect]
     Indication: METASTATIC RENAL CELL CARCINOMA
     Dosage: 25 MG, WEEKLY
     Route: 042
     Dates: start: 20110914
  2. POLARAMINE [Concomitant]
     Indication: PROPHYLAXIS
     Dosage: 5 MG, 1X/DAY
     Route: 041
  3. RISUMIC [Concomitant]
     Dosage: 5 MG, 2X/DAY
     Route: 048
  4. ASPIRIN [Concomitant]
     Dosage: UNK MG, UNK
     Route: 048
  5. PURSENNIDE [Concomitant]
     Dosage: 12 MG, AS NEEDED
  6. DAI-KENCHU-TO [Concomitant]
     Dosage: 5 G, 3X/DAY
     Route: 048
  7. WARFARIN [Concomitant]
     Dosage: 2.5 MG, 1X/DAY
     Route: 048
  8. PANTOSIN [Concomitant]
     Dosage: 0.67 G, 3X/DAY
     Route: 048
  9. MAGMITT [Concomitant]
     Dosage: 330 MG, 3X/DAY
     Route: 048
  10. CEFAZOLIN SODIUM [Concomitant]
     Dosage: 1 G, 3X/DAY
     Route: 048

REACTIONS (3)
  - DEATH [None]
  - INFECTION [None]
  - INTERSTITIAL LUNG DISEASE [None]
